FAERS Safety Report 6712952-5 (Version None)
Quarter: 2010Q2

REPORT INFORMATION
  Report Type: 
  Country: None (occurrence: None)
  Receive Date: 20100506
  Receipt Date: 20100428
  Transmission Date: 20101027
  Serious: Yes (Life-Threatening, Other)
  Sender: FDA-Public Use
  Company Number: DE-TEVA-232133ISR

PATIENT
  Sex: Female
  Weight: 95 kg

DRUGS (4)
  1. CARBOPLATIN [Suspect]
     Indication: OVARIAN CANCER
     Route: 042
     Dates: start: 20100420, end: 20100420
  2. GEMCITABINE HCL [Concomitant]
     Indication: NEOPLASM
     Route: 042
  3. ONDANSETRON [Concomitant]
     Indication: NEOPLASM
  4. ONDANSETRON [Concomitant]
     Indication: ANTIEMETIC SUPPORTIVE CARE

REACTIONS (1)
  - SHOCK [None]
